FAERS Safety Report 24282234 (Version 1)
Quarter: 2024Q3

REPORT INFORMATION
  Report Type: Spontaneous
  Country: US (occurrence: None)
  Receive Date: 20240902
  Receipt Date: 20240902
  Transmission Date: 20241016
  Serious: Yes (Disabling, Other)
  Sender: Public
  Company Number: None

PATIENT
  Age: 59 Year
  Sex: Female
  Weight: 63 kg

DRUGS (1)
  1. PROLIA [Suspect]
     Active Substance: DENOSUMAB
     Indication: Osteoporosis
     Dates: start: 20240301

REACTIONS (5)
  - Mobility decreased [None]
  - Pain [None]
  - Dyspepsia [None]
  - Quality of life decreased [None]
  - Blood cholesterol increased [None]

NARRATIVE: CASE EVENT DATE: 20240301
